FAERS Safety Report 11485807 (Version 1)
Quarter: 2015Q3

REPORT INFORMATION
  Report Type: Report from Study
  Country: NL (occurrence: NL)
  Receive Date: 20150910
  Receipt Date: 20150910
  Transmission Date: 20151125
  Serious: Yes (Death)
  Sender: FDA-Public Use
  Company Number: PHHY2015NL108799

PATIENT
  Sex: Male

DRUGS (2)
  1. TOBI [Suspect]
     Active Substance: TOBRAMYCIN
     Indication: CYSTIC FIBROSIS
     Dosage: (28 DAYS SCHEDULE)
     Route: 055
  2. TOBI [Suspect]
     Active Substance: TOBRAMYCIN
     Indication: LUNG TRANSPLANT

REACTIONS (2)
  - Death [Fatal]
  - Off label use [Unknown]
